FAERS Safety Report 5077880-2 (Version None)
Quarter: 2006Q3

REPORT INFORMATION
  Report Type: 
  Country: None (occurrence: None)
  Receive Date: 20060720
  Receipt Date: 20060109
  Transmission Date: 20061208
  Serious: Yes (Other)
  Sender: FDA-Public Use
  Company Number: 2006MP000057

PATIENT
  Age: 61 Year
  Sex: Male

DRUGS (1)
  1. AGGRASTAT [Suspect]
     Indication: CORONARY ANGIOPLASTY
     Dosage: 500 UG/HR; IV
     Route: 042
     Dates: start: 20051129, end: 20051130

REACTIONS (1)
  - THROMBOCYTOPENIA [None]
